FAERS Safety Report 8999758 (Version 2)
Quarter: 2013Q1

REPORT INFORMATION
  Report Type: Spontaneous
  Country: US (occurrence: US)
  Receive Date: 20130102
  Receipt Date: 20130129
  Transmission Date: 20140127
  Serious: Yes (Hospitalization)
  Sender: FDA-Public Use
  Company Number: US-US-EMD SERONO, INC.-7184542

PATIENT
  Age: 59 None
  Sex: Female

DRUGS (1)
  1. REBIF [Suspect]
     Indication: MULTIPLE SCLEROSIS
     Route: 058
     Dates: start: 20090116

REACTIONS (4)
  - Shoulder operation [Unknown]
  - Urinary tract infection [Not Recovered/Not Resolved]
  - Fungal infection [Unknown]
  - Urinary retention [Not Recovered/Not Resolved]
